FAERS Safety Report 9621337 (Version 3)
Quarter: 2013Q4

REPORT INFORMATION
  Report Type: Spontaneous
  Country: GB (occurrence: GB)
  Receive Date: 20131015
  Receipt Date: 20131218
  Transmission Date: 20140711
  Serious: Yes (Life-Threatening, Hospitalization, Other)
  Sender: FDA-Public Use
  Company Number: GB-PFIZER INC-2013280644

PATIENT
  Age: 8 Decade
  Sex: Female

DRUGS (14)
  1. CYCLOPHOSPHAMIDE [Suspect]
     Dosage: 1200 MG, UNK
     Dates: start: 20130726
  2. DOXORUBICIN [Suspect]
     Dosage: 84 MG, UNK
     Dates: start: 20130726
  3. DOMPERIDONE [Suspect]
     Dosage: 10 MG, UNK
     Route: 048
     Dates: start: 20130726, end: 20130918
  4. RITUXIMAB [Suspect]
     Dosage: 630 MG, UNK
     Dates: start: 20130726
  5. VINCRISTINE [Suspect]
     Dosage: 2 MG, UNK
     Dates: start: 20130726
  6. BORTEZOMIB [Suspect]
     Dosage: 2.2 MG, UNK
     Route: 065
     Dates: start: 20130826
  7. PREDNISOLONE [Suspect]
     Dosage: 100 MG, UNK
     Route: 065
     Dates: start: 20130726
  8. LEVOTHYROXINE [Concomitant]
     Dosage: 50 MG, UNK
     Route: 048
     Dates: start: 20120525
  9. FUROSEMIDE [Concomitant]
     Dosage: 40 MG, UNK
     Route: 048
     Dates: start: 20100428, end: 20130918
  10. CYCLIZINE [Concomitant]
     Dosage: UNK
     Route: 048
     Dates: start: 20130814, end: 20130918
  11. BISOPROLOL [Concomitant]
     Dosage: 5 MG, UNK
     Route: 065
     Dates: start: 20100428
  12. AMIODARONE [Concomitant]
     Dosage: 100 MG, UNK
     Route: 048
     Dates: start: 20110303
  13. FRAGMIN [Concomitant]
     Dosage: 15000 UNK, UNK
     Route: 058
     Dates: start: 201307, end: 20130918
  14. ALLOPURINOL [Concomitant]
     Dosage: UNK
     Route: 048
     Dates: start: 20130726, end: 20130918

REACTIONS (10)
  - Sepsis [Not Recovered/Not Resolved]
  - Neutropenia [Not Recovered/Not Resolved]
  - Dehydration [Not Recovered/Not Resolved]
  - Hypotension [Not Recovered/Not Resolved]
  - Nausea [Unknown]
  - Vomiting [Unknown]
  - Oropharyngeal pain [Unknown]
  - Diarrhoea [Unknown]
  - Syncope [Unknown]
  - Platelet count decreased [Unknown]
